FAERS Safety Report 7165925-5 (Version None)
Quarter: 2010Q4

REPORT INFORMATION
  Report Type: 
  Country: None (occurrence: None)
  Receive Date: 20101216
  Receipt Date: 20101208
  Transmission Date: 20110411
  Serious: Yes (Hospitalization)
  Sender: FDA-Public Use
  Company Number: US-BIOGENIDEC-2010BI043483

PATIENT
  Sex: Male

DRUGS (1)
  1. AVONEX [Suspect]
     Indication: MULTIPLE SCLEROSIS
     Route: 030
     Dates: start: 20020821

REACTIONS (9)
  - ASTHENIA [None]
  - BLOOD COUNT ABNORMAL [None]
  - BURSITIS [None]
  - CELLULITIS [None]
  - INFECTION [None]
  - INFLUENZA LIKE ILLNESS [None]
  - JOINT INJURY [None]
  - OEDEMA PERIPHERAL [None]
  - WHITE BLOOD CELL COUNT DECREASED [None]
